FAERS Safety Report 8990733 (Version 1)
Quarter: 2012Q4

REPORT INFORMATION
  Report Type: 
  Country: US (occurrence: US)
  Receive Date: 20121228
  Receipt Date: 20121228
  Transmission Date: 20130627
  Serious: No
  Sender: FDA-Public Use
  Company Number: US-PFIZER INC-2012330229

PATIENT
  Age: 51 Year
  Sex: Female
  Weight: 99.77 kg

DRUGS (2)
  1. ADVIL [Suspect]
     Dosage: 200 mg, UNK
     Route: 048
  2. ADVIL [Suspect]
     Dosage: 200 mg, 2x/day
     Route: 048

REACTIONS (1)
  - Drug ineffective [Unknown]
